FAERS Safety Report 5378633-8 (Version None)
Quarter: 2007Q3

REPORT INFORMATION
  Report Type: 
  Country: None (occurrence: None)
  Receive Date: 20070702
  Receipt Date: 20070702
  Transmission Date: 20080115
  Serious: Yes (Hospitalization)
  Sender: FDA-Public Use
  Company Number: None

PATIENT
  Age: 61 Year
  Sex: Male

DRUGS (2)
  1. FENTANYL [Suspect]
     Indication: PAIN
     Dosage: 100MCG ONCE TOP
     Route: 061
     Dates: start: 20070614, end: 20070614
  2. MEPERIDINE HCL [Suspect]
     Dosage: 25MG ONCE IM
     Route: 030

REACTIONS (1)
  - CONVULSION [None]
